FAERS Safety Report 7120927-X (Version None)
Quarter: 2010Q4

REPORT INFORMATION
  Report Type: 
  Country: None (occurrence: None)
  Receive Date: 20101124
  Receipt Date: 20101116
  Transmission Date: 20110411
  Serious: Yes (Hospitalization)
  Sender: FDA-Public Use
  Company Number: FR-KINGPHARMUSA00001-K201001211

PATIENT
  Age: 77 Year
  Sex: Male

DRUGS (6)
  1. ALTACE [Suspect]
     Dosage: 1.25 MG, QD
     Route: 048
     Dates: start: 20020924, end: 20100824
  2. NEO-MERCAZOLE TAB [Suspect]
     Indication: HYPERTHYROIDISM
     Dosage: 20 MG, QD
     Route: 048
     Dates: start: 20100727, end: 20100824
  3. ALLOPURINOL [Suspect]
     Indication: GOUT
     Dosage: 100 MG, QD
     Route: 048
     Dates: start: 20100112, end: 20100824
  4. CARDENSIEL [Concomitant]
  5. PREVISCAN [Concomitant]
  6. LASIX [Concomitant]

REACTIONS (3)
  - AGRANULOCYTOSIS [None]
  - BRONCHITIS [None]
  - CARDIAC FAILURE ACUTE [None]
